FAERS Safety Report 8908635 (Version 1)
Quarter: 2012Q4

REPORT INFORMATION
  Report Type: Report from Study
  Country: JP (occurrence: JP)
  Receive Date: 20121114
  Receipt Date: 20121114
  Transmission Date: 20130627
  Serious: Yes (Hospitalization, Other)
  Sender: FDA-Public Use
  Company Number: JP-VERTEX PHARMACEUTICAL INC.-AE-2012-009750

PATIENT
  Age: 67 Year
  Sex: Female

DRUGS (7)
  1. VX-950 (TELAPREVIR) [Suspect]
     Indication: CHRONIC HEPATITIS C
     Dosage: 2250 mg, qd
     Route: 048
     Dates: start: 20120509, end: 20120517
  2. VX-950 (TELAPREVIR) [Suspect]
     Dosage: 1500 mg, qd
     Route: 048
     Dates: start: 20120518, end: 20120607
  3. RIBAVIRIN [Suspect]
     Indication: CHRONIC HEPATITIS C
     Dosage: 600 mg, UNK
     Route: 048
     Dates: start: 20120509, end: 20120601
  4. RIBAVIRIN [Suspect]
     Dosage: 400 mg, UNK
     Route: 048
     Dates: start: 20120602
  5. PEGINTERFERON ALFA-2B [Concomitant]
     Indication: CHRONIC HEPATITIS C
     Dosage: 1.5 ?g/kg, qw
     Route: 058
     Dates: start: 20120509
  6. SEFIROM [Concomitant]
     Route: 042
     Dates: start: 20120611
  7. MICARDIS [Concomitant]
     Route: 048

REACTIONS (5)
  - Pyelonephritis [Recovered/Resolved]
  - Decreased appetite [Recovered/Resolved]
  - White blood cell count decreased [Not Recovered/Not Resolved]
  - Nausea [Recovered/Resolved]
  - Vomiting [Recovered/Resolved]
